FAERS Safety Report 12203578 (Version 1)
Quarter: 2016Q1

REPORT INFORMATION
  Report Type: Spontaneous
  Country: US (occurrence: US)
  Receive Date: 20160323
  Receipt Date: 20160323
  Transmission Date: 20160526
  Serious: Yes (Other)
  Sender: FDA-Public Use
  Company Number: US-BEH-2016060285

PATIENT
  Sex: Female
  Weight: 58 kg

DRUGS (24)
  1. LIDOCAINE/PRILOCAINE [Concomitant]
  2. ZYRTEC [Concomitant]
     Active Substance: CETIRIZINE HYDROCHLORIDE
  3. HIZENTRA [Suspect]
     Active Substance: HUMAN IMMUNOGLOBULIN G
     Indication: PRODUCT USED FOR UNKNOWN INDICATION
     Dosage: STRENGTH OF DOSAGE FORM: 1GM 5ML VIALS
     Route: 058
  4. LMX [Concomitant]
     Active Substance: LIDOCAINE
  5. AMBIEN [Concomitant]
     Active Substance: ZOLPIDEM TARTRATE
  6. ATENOLOL. [Concomitant]
     Active Substance: ATENOLOL
  7. ZOFRAN [Concomitant]
     Active Substance: ONDANSETRON HYDROCHLORIDE
  8. COMPLETE MULTIVITAMIN [Concomitant]
     Active Substance: VITAMINS
  9. NORVASC [Concomitant]
     Active Substance: AMLODIPINE BESYLATE
  10. CALCIUM + VITAMIN D [Concomitant]
     Active Substance: CALCIUM\VITAMIN D
  11. B-COMPLEX PLUS VITAMIN C [Concomitant]
  12. OMEPRAZOLE. [Concomitant]
     Active Substance: OMEPRAZOLE
  13. ALBUTEROL. [Concomitant]
     Active Substance: ALBUTEROL
  14. EPIPEN [Concomitant]
     Active Substance: EPINEPHRINE
  15. GABAPENTIN. [Concomitant]
     Active Substance: GABAPENTIN
  16. SYNTHROID [Concomitant]
     Active Substance: LEVOTHYROXINE SODIUM
  17. ACETAMINOPHEN. [Concomitant]
     Active Substance: ACETAMINOPHEN
  18. DIPHENHYDRAMINE. [Concomitant]
     Active Substance: DIPHENHYDRAMINE
  19. TRAZODONE [Concomitant]
     Active Substance: TRAZODONE HYDROCHLORIDE
  20. SYMBICORT [Concomitant]
     Active Substance: BUDESONIDE\FORMOTEROL FUMARATE DIHYDRATE
  21. LOPERAMIDE [Concomitant]
     Active Substance: LOPERAMIDE
  22. NORCO [Concomitant]
     Active Substance: ACETAMINOPHEN\HYDROCODONE BITARTRATE
  23. FLONASE [Concomitant]
     Active Substance: FLUTICASONE PROPIONATE
  24. TESSALON [Concomitant]
     Active Substance: BENZONATATE

REACTIONS (1)
  - Surgery [Unknown]
